FAERS Safety Report 6690987-9 (Version None)
Quarter: 2010Q2

REPORT INFORMATION
  Report Type: 
  Country: None (occurrence: None)
  Receive Date: 20100421
  Receipt Date: 20100412
  Transmission Date: 20101027
  Serious: Yes (Other)
  Sender: FDA-Public Use
  Company Number: US-AMGEN-KDL404505

PATIENT
  Sex: Female

DRUGS (3)
  1. ENBREL [Suspect]
     Indication: RHEUMATOID ARTHRITIS
     Route: 058
     Dates: start: 20100401
  2. HYDROXYCHLOROQUINE SULFATE [Concomitant]
  3. METHOTREXATE [Concomitant]
     Route: 048

REACTIONS (4)
  - BALANCE DISORDER [None]
  - DIZZINESS [None]
  - NERVOUSNESS [None]
  - TREMOR [None]
